FAERS Safety Report 7277113-2 (Version None)
Quarter: 2011Q1

REPORT INFORMATION
  Report Type: 
  Country: None (occurrence: None)
  Receive Date: 20110202
  Receipt Date: 20110202
  Transmission Date: 20110831
  Serious: No
  Sender: FDA-Public Use
  Company Number: None

PATIENT
  Age: 65 Year
  Sex: Female
  Weight: 68.0396 kg

DRUGS (2)
  1. PATANASE NASAL SPRAY 685 MCG - ALCON [Suspect]
     Indication: MULTIPLE ALLERGIES
     Dosage: 2 SPRAYS, EACH NOSTRIL EVERY 12 HRS
     Route: 045
     Dates: start: 20100916, end: 20101102
  2. PATANASE NASAL SPRAY 685 MCG - ALCON [Suspect]
     Indication: OBSTRUCTION
     Dosage: 2 SPRAYS, EACH NOSTRIL EVERY 12 HRS
     Route: 045
     Dates: start: 20100916, end: 20101102

REACTIONS (3)
  - HAEMOPTYSIS [None]
  - EPISTAXIS [None]
  - DEAFNESS [None]
